FAERS Safety Report 20710096 (Version 2)
Quarter: 2022Q2

REPORT INFORMATION
  Report Type: Spontaneous
  Country: DE (occurrence: DE)
  Receive Date: 20220414
  Receipt Date: 20220429
  Transmission Date: 20220720
  Serious: Yes (Other)
  Sender: FDA-Public Use
  Company Number: DE-BAUSCH-BL-2022-008608

PATIENT
  Age: 67 Year
  Sex: Female

DRUGS (11)
  1. TIMOPTIC [Suspect]
     Active Substance: TIMOLOL MALEATE
     Indication: Angle closure glaucoma
     Dosage: IN THE EVENING BOTH EYES
     Route: 047
     Dates: start: 2019, end: 202103
  2. TIMOPTIC [Suspect]
     Active Substance: TIMOLOL MALEATE
     Dosage: IN THE EVENING BOTH EYES FOR 4 APPLICATIONS
     Route: 047
  3. CLONIDINE HYDROCHLORIDE [Suspect]
     Active Substance: CLONIDINE HYDROCHLORIDE
     Indication: Product used for unknown indication
     Dosage: 2X DAILY ON BOTH EYES (1/4 YEARS AGO)
     Route: 047
  4. CLONIDINE HYDROCHLORIDE [Suspect]
     Active Substance: CLONIDINE HYDROCHLORIDE
     Dosage: 2X DAILY ON BOTH EYES
     Route: 047
     Dates: start: 202103
  5. CLONIDINE HYDROCHLORIDE [Suspect]
     Active Substance: CLONIDINE HYDROCHLORIDE
     Dosage: 2X DAILY ON BOTH EYES (1 DROP IN MORNING, 1 DROP IN EVENING AND 1 GTT TIM OPHTAL IN NOON
     Route: 047
     Dates: start: 202203
  6. DEXAMETHASONE\NEOMYCIN SULFATE\POLYMYXIN B SULFATE [Suspect]
     Active Substance: DEXAMETHASONE\NEOMYCIN SULFATE\POLYMYXIN B SULFATE
     Indication: Postoperative care
     Dosage: 1ST WEEK 5X DAILY, 2ND WEEK 4X DAILY, 3RD WEEK 3X DAILY, 4TH WEEK 2X DAILY AND IN 5TH WEEK 1X DAILY
     Route: 065
  7. DEXAMETHASONE\NEOMYCIN SULFATE\POLYMYXIN B SULFATE [Suspect]
     Active Substance: DEXAMETHASONE\NEOMYCIN SULFATE\POLYMYXIN B SULFATE
     Dosage: 4TH WEEK 2X DAILY
     Route: 065
  8. DEXAMETHASONE\NEOMYCIN SULFATE\POLYMYXIN B SULFATE [Suspect]
     Active Substance: DEXAMETHASONE\NEOMYCIN SULFATE\POLYMYXIN B SULFATE
     Dosage: 1X DAILY
  9. BISOPROLOL [Concomitant]
     Active Substance: BISOPROLOL
     Indication: Seasonal allergy
  10. LERCANIDIPINE [Concomitant]
     Active Substance: LERCANIDIPINE
     Indication: Seasonal allergy
     Dosage: HALF TABLET DAILY
  11. CROM OPHTAL SINE [Concomitant]
     Indication: Seasonal allergy

REACTIONS (7)
  - Cataract [Unknown]
  - Rash [Recovered/Resolved]
  - Intraocular pressure increased [Recovering/Resolving]
  - Swelling face [Recovered/Resolved]
  - Blood pressure increased [Recovered/Resolved]
  - Mood swings [Recovered/Resolved]
  - Dry mouth [Unknown]

NARRATIVE: CASE EVENT DATE: 20190101
